FAERS Safety Report 11583763 (Version 1)
Quarter: 2015Q4

REPORT INFORMATION
  Report Type: Spontaneous
  Country: US (occurrence: US)
  Receive Date: 20151001
  Receipt Date: 20151001
  Transmission Date: 20160304
  Serious: No
  Sender: FDA-Public Use
  Company Number: US-ROCHE-671037

PATIENT
  Sex: Male

DRUGS (2)
  1. RIBAVIRIN. [Suspect]
     Active Substance: RIBAVIRIN
     Indication: HEPATITIS C
     Dosage: DIVIDED DOSES
     Route: 065
  2. PEGASYS [Suspect]
     Active Substance: PEGINTERFERON ALFA-2A
     Indication: HEPATITIS C
     Dosage: FORM: PRE-FILLED SYRINGE
     Route: 065

REACTIONS (9)
  - Weight decreased [Unknown]
  - Disturbance in attention [Unknown]
  - Insomnia [Unknown]
  - Nasal dryness [Unknown]
  - Crying [Unknown]
  - Lip dry [Unknown]
  - Asthenia [Unknown]
  - Decreased appetite [Unknown]
  - Emotional disorder [Unknown]
